FAERS Safety Report 16464589 (Version 3)
Quarter: 2019Q3

REPORT INFORMATION
  Report Type: Spontaneous
  Country: JP (occurrence: JP)
  Receive Date: 20190621
  Receipt Date: 20190704
  Transmission Date: 20191004
  Serious: Yes (Other)
  Sender: FDA-Public Use
  Company Number: JP-ASTRAZENECA-2019SE64731

PATIENT
  Age: 449 Month
  Sex: Male
  Weight: 92 kg

DRUGS (11)
  1. SLO-BID [Concomitant]
     Active Substance: THEOPHYLLINE ANHYDROUS
     Indication: ASTHMA
     Route: 048
     Dates: start: 20141203
  2. ALLELOCK [Concomitant]
     Active Substance: OLOPATADINE HYDROCHLORIDE
     Indication: ASTHMA
     Route: 048
     Dates: start: 20150930
  3. BERBESOLONE [Concomitant]
     Dosage: FOR BOTH EYES SIX TIMES/DAY
  4. MUCOSTA [Concomitant]
     Active Substance: REBAMIPIDE
     Indication: DRY EYE
     Dosage: WHEN DRY
     Route: 031
  5. TALYMUS [Concomitant]
     Active Substance: TACROLIMUS
     Dosage: FOR LEFT EYE FOUR TIMES/DAY
  6. FASENRA [Suspect]
     Active Substance: BENRALIZUMAB
     Indication: ASTHMA
     Dosage: 30 MG ONCE EVERY TWO MONTHS
     Route: 058
     Dates: start: 20180804, end: 20190316
  7. DORMOLOL [Concomitant]
     Dosage: FOR BOTH EYES TWO TIMES/DAY
  8. DEX [Concomitant]
     Active Substance: UNSPECIFIED INGREDIENT
     Dosage: FOR LEFT MASSES TWO TO FOUR TIMES/DAY
  9. MONTELUKAST [Concomitant]
     Active Substance: MONTELUKAST SODIUM
     Indication: ASTHMA
     Route: 048
     Dates: start: 20160330
  10. RELVAR [Concomitant]
     Active Substance: FLUTICASONE FUROATE\VILANTEROL TRIFENATATE
     Indication: ASTHMA
     Route: 055
     Dates: start: 20160316
  11. DIQUAS [Concomitant]
     Active Substance: DIQUAFOSOL TETRASODIUM
     Indication: DRY EYE
     Dosage: WHEN DRY
     Route: 031

REACTIONS (2)
  - Vernal keratoconjunctivitis [Not Recovered/Not Resolved]
  - Dry eye [Unknown]

NARRATIVE: CASE EVENT DATE: 201901
